FAERS Safety Report 8949752 (Version 2)
Quarter: 2014Q1

REPORT INFORMATION
  Report Type: Report from Study
  Country: FR (occurrence: FR)
  Receive Date: 20121206
  Receipt Date: 20140324
  Transmission Date: 20141002
  Serious: Yes (Hospitalization)
  Sender: FDA-Public Use
  Company Number: FR-ROCHE-1163246

PATIENT
  Age: 53 Year
  Sex: Male

DRUGS (13)
  1. RITUXIMAB [Suspect]
     Indication: RHEUMATOID ARTHRITIS
     Route: 065
     Dates: start: 20060906
  2. RITUXIMAB [Suspect]
     Route: 065
     Dates: start: 20060920
  3. RITUXIMAB [Suspect]
     Route: 065
     Dates: start: 20080211
  4. RITUXIMAB [Suspect]
     Route: 065
     Dates: start: 20080225
  5. RITUXIMAB [Suspect]
     Route: 065
     Dates: start: 20090902
  6. RITUXIMAB [Suspect]
     Route: 065
     Dates: start: 20090928
  7. RITUXIMAB [Suspect]
     Route: 065
     Dates: start: 20110303
  8. RITUXIMAB [Suspect]
     Route: 065
     Dates: start: 20110317
  9. RITUXIMAB [Suspect]
     Route: 065
     Dates: start: 20120614
  10. RITUXIMAB [Suspect]
     Route: 065
     Dates: start: 20120627
  11. ACADIONE [Concomitant]
     Route: 065
  12. ACADIONE [Concomitant]
     Route: 065
  13. CORTANCYL [Concomitant]
     Route: 065

REACTIONS (4)
  - Squamous cell carcinoma [Recovered/Resolved]
  - Lymphopenia [Recovered/Resolved]
  - Myocardial infarction [Recovering/Resolving]
  - Muscle disorder [Recovered/Resolved]
